FAERS Safety Report 7690247-3 (Version None)
Quarter: 2011Q3

REPORT INFORMATION
  Report Type: 
  Country: None (occurrence: None)
  Receive Date: 20110818
  Receipt Date: 20110816
  Transmission Date: 20111222
  Serious: No
  Sender: FDA-Public Use
  Company Number: US-PFIZER INC-2011189228

PATIENT
  Sex: Male

DRUGS (2)
  1. EFFEXOR XR [Suspect]
     Indication: ANXIETY
     Dosage: 75 MG, DAILY
     Dates: start: 20110301, end: 20110514
  2. EFFEXOR XR [Suspect]
     Dosage: 150 MG, DAILY
     Dates: start: 20110515

REACTIONS (1)
  - FALSE POSITIVE INVESTIGATION RESULT [None]
